FAERS Safety Report 19929428 (Version 1)
Quarter: 2021Q4

REPORT INFORMATION
  Report Type: Spontaneous
  Country: DE (occurrence: DE)
  Receive Date: 20211007
  Receipt Date: 20211007
  Transmission Date: 20220303
  Serious: Yes (Other)
  Sender: FDA-Public Use
  Company Number: DE-PFIZER INC-202101323793

PATIENT
  Age: 3 Year
  Sex: Male

DRUGS (1)
  1. CYTOTEC [Suspect]
     Active Substance: MISOPROSTOL
     Route: 064

REACTIONS (2)
  - Autism spectrum disorder [Unknown]
  - Maternal exposure during pregnancy [Unknown]
